FAERS Safety Report 8171942-9 (Version None)
Quarter: 2012Q1

REPORT INFORMATION
  Report Type: 
  Country: None (occurrence: None)
  Receive Date: 20120228
  Receipt Date: 20120223
  Transmission Date: 20120608
  Serious: Yes (Death, Hospitalization)
  Sender: FDA-Public Use
  Company Number: GB-ROCHE-GNE322616

PATIENT
  Sex: Female

DRUGS (13)
  1. LUCENTIS [Suspect]
     Indication: AGE-RELATED MACULAR DEGENERATION
     Route: 050
     Dates: start: 20090130
  2. SERETIDE [Concomitant]
  3. ALBUTEROL [Concomitant]
  4. ALENDRONIC ACID [Concomitant]
  5. SPIRONOLACTONE [Concomitant]
  6. FERROUS SULFATE TAB [Concomitant]
  7. LACTULOSE [Concomitant]
  8. DIGOXIN [Concomitant]
  9. FUROSEMIDE [Concomitant]
  10. ERYTHROMYCIN [Concomitant]
  11. FLUVASTATIN [Concomitant]
  12. WARFARIN SODIUM [Concomitant]
  13. ADCAL - D3 [Concomitant]

REACTIONS (3)
  - PNEUMONIA [None]
  - CARDIAC FAILURE CONGESTIVE [None]
  - AORTIC STENOSIS [None]
